FAERS Safety Report 9166827 (Version 1)
Quarter: 2012Q4

REPORT INFORMATION
  Report Type: 
  Country: US (occurrence: US)
  Receive Date: 20121106
  Receipt Date: 20121106
  Transmission Date: 20130627
  Serious: Yes (Other)
  Sender: FDA-Public Use
  Company Number: US-RB-046370-12

PATIENT
  Age: 44 Year
  Sex: Female

DRUGS (3)
  1. SUBUTEX [Suspect]
     Indication: PAIN
     Route: 060
     Dates: start: 2011, end: 201110
  2. SUBOXONE FILM [Suspect]
     Indication: PAIN
     Dosage: Suboxone film
     Route: 060
     Dates: start: 2010, end: 2011
  3. COLACE [Concomitant]
     Indication: CONSTIPATION PROPHYLAXIS
     Dosage: Dosing details unknown
     Route: 065

REACTIONS (2)
  - Exposure during pregnancy [Recovered/Resolved]
  - Abortion spontaneous [Recovered/Resolved]
